FAERS Safety Report 12753126 (Version 1)
Quarter: 2016Q3

REPORT INFORMATION
  Report Type: Spontaneous
  Country: IT (occurrence: IT)
  Receive Date: 20160916
  Receipt Date: 20160916
  Transmission Date: 20161109
  Serious: Yes (Hospitalization, Other)
  Sender: FDA-Public Use
  Company Number: IT-TEVA-691180ACC

PATIENT
  Age: 56 Year
  Sex: Male

DRUGS (3)
  1. BROMOCRIPTINE [Suspect]
     Active Substance: BROMOCRIPTINE
     Dosage: 7.5 MILLIGRAM DAILY;
  2. BROMOCRIPTINE [Suspect]
     Active Substance: BROMOCRIPTINE
     Indication: PITUITARY TUMOUR BENIGN
     Dosage: 10 MILLIGRAM DAILY;
     Route: 065
  3. CABERGOLINE. [Suspect]
     Active Substance: CABERGOLINE
     Indication: PITUITARY TUMOUR BENIGN
     Dosage: .5 MILLIGRAM DAILY;
     Route: 065

REACTIONS (2)
  - Cardiac valve disease [Recovered/Resolved]
  - Cardiac failure acute [Recovered/Resolved]
